FAERS Safety Report 18542341 (Version 1)
Quarter: 2020Q4

REPORT INFORMATION
  Report Type: Spontaneous
  Country: TW (occurrence: TW)
  Receive Date: 20201124
  Receipt Date: 20201124
  Transmission Date: 20210114
  Serious: Yes (Hospitalization)
  Sender: FDA-Public Use
  Company Number: TW-INCYTE CORPORATION-2020IN011571

PATIENT

DRUGS (2)
  1. JAKAVI [Suspect]
     Active Substance: RUXOLITINIB
     Indication: MYELOFIBROSIS
     Dosage: 15 MG, BID (TWICE A DAY)
     Route: 065
     Dates: start: 2019
  2. JAKAVI [Suspect]
     Active Substance: RUXOLITINIB
     Dosage: 5 MG, BID
     Route: 065

REACTIONS (5)
  - Anaemia [Not Recovered/Not Resolved]
  - Cardiac failure congestive [Unknown]
  - Blood lactate dehydrogenase increased [Unknown]
  - Product use in unapproved indication [Unknown]
  - Splenomegaly [Unknown]

NARRATIVE: CASE EVENT DATE: 2019
